FAERS Safety Report 14536582 (Version 1)
Quarter: 2018Q1

REPORT INFORMATION
  Report Type: Spontaneous
  Country: US (occurrence: US)
  Receive Date: 20180215
  Receipt Date: 20180215
  Transmission Date: 20180509
  Serious: Yes (Hospitalization)
  Sender: FDA-Public Use
  Company Number: None

PATIENT
  Age: 63 Year
  Sex: Female
  Weight: 80.7 kg

DRUGS (13)
  1. DOCUSATE [Concomitant]
     Active Substance: DOCUSATE
  2. LEVAQUIN [Concomitant]
     Active Substance: LEVOFLOXACIN
  3. LANTUS [Suspect]
     Active Substance: INSULIN GLARGINE
     Indication: DIABETES MELLITUS
     Dosage: DATES OF USE - CHRONIC?DOSE - 50 UNITS?FREQUENCY - NIGHTLY
     Route: 058
  4. ALBUTEROL. [Concomitant]
     Active Substance: ALBUTEROL
  5. ECOTRIN [Concomitant]
     Active Substance: ASPIRIN
  6. ELIQUIS [Concomitant]
     Active Substance: APIXABAN
  7. 5FU [Concomitant]
     Active Substance: FLUOROURACIL
  8. NORCO [Concomitant]
     Active Substance: ACETAMINOPHEN\HYDROCODONE BITARTRATE
  9. EMLA [Concomitant]
     Active Substance: LIDOCAINE\PRILOCAINE
  10. GLIPIZIDE. [Suspect]
     Active Substance: GLIPIZIDE
     Indication: DIABETES MELLITUS
     Dosage: DATES OF USE - CHRONIC
     Route: 048
  11. XANAX [Concomitant]
     Active Substance: ALPRAZOLAM
  12. VITAMIN D3 [Concomitant]
     Active Substance: CHOLECALCIFEROL
  13. ZESTRIL [Concomitant]
     Active Substance: LISINOPRIL

REACTIONS (2)
  - Hypoglycaemia [None]
  - Hypophagia [None]

NARRATIVE: CASE EVENT DATE: 20170608
